FAERS Safety Report 4485803-X (Version None)
Quarter: 2004Q4

REPORT INFORMATION
  Report Type: 
  Country: None (occurrence: None)
  Receive Date: 20041021
  Receipt Date: 20041007
  Transmission Date: 20050328
  Serious: Yes (Other)
  Sender: FDA-Public Use
  Company Number: A03200403379

PATIENT

DRUGS (1)
  1. OXALIPLATIN [Suspect]
     Dosage: INTRAVENOUS NOS
     Route: 042

REACTIONS (1)
  - HEPATIC CIRRHOSIS [None]
